FAERS Safety Report 16380639 (Version 2)
Quarter: 2020Q3

REPORT INFORMATION
  Report Type: Spontaneous
  Country: FR (occurrence: FR)
  Receive Date: 20190601
  Receipt Date: 20190812
  Transmission Date: 20201104
  Serious: Yes (Other)
  Sender: FDA-Public Use
  Company Number: FR-ACCORD-130403

PATIENT
  Age: 67 Year
  Sex: Male
  Weight: 98 kg

DRUGS (21)
  1. ASPEGIC [ACETYLSALICYLIC ACID] [Suspect]
     Active Substance: ASPIRIN
     Indication: ACUTE CORONARY SYNDROME
     Route: 042
     Dates: start: 20190311, end: 20190311
  2. ATORVASTATIN [Concomitant]
     Active Substance: ATORVASTATIN
  3. SIMVASTATIN. [Concomitant]
     Active Substance: SIMVASTATIN
  4. ISOPTINE [Suspect]
     Active Substance: VERAPAMIL HYDROCHLORIDE
     Indication: ANGIOPLASTY
     Route: 022
     Dates: start: 20190325, end: 20190325
  5. BRINTELLIX [Concomitant]
     Active Substance: VORTIOXETINE HYDROBROMIDE
  6. STAGID [Concomitant]
     Active Substance: METFORMIN PAMOATE
  7. LIDOCAINE. [Suspect]
     Active Substance: LIDOCAINE
     Indication: ANGIOCARDIOGRAM
     Route: 058
     Dates: start: 20190311, end: 20190311
  8. KARDEGIC [Concomitant]
     Active Substance: ASPIRIN DL-LYSINE
  9. HEPARIN [Suspect]
     Active Substance: HEPARIN SODIUM
     Indication: ANGIOPLASTY
     Route: 022
     Dates: start: 20190325, end: 20190325
  10. EPHEDRINE. [Suspect]
     Active Substance: EPHEDRINE
     Indication: ANGIOPLASTY
     Route: 042
     Dates: start: 20190325, end: 20190325
  11. ISOSORBIDE MEDISOL [Suspect]
     Active Substance: ISOSORBIDE DINITRATE
     Indication: ANGIOPLASTY
     Route: 022
     Dates: start: 20190325, end: 20190325
  12. BRILIQUE [Suspect]
     Active Substance: TICAGRELOR
     Indication: PRODUCT USED FOR UNKNOWN INDICATION
  13. BISOPROLOL [Concomitant]
     Active Substance: BISOPROLOL
  14. ISOSORBIDE MEDISOL [Suspect]
     Active Substance: ISOSORBIDE DINITRATE
     Indication: ANGIOCARDIOGRAM
     Route: 022
     Dates: start: 20190311, end: 20190311
  15. RAMIPRIL. [Suspect]
     Active Substance: RAMIPRIL
     Indication: PRODUCT USED FOR UNKNOWN INDICATION
  16. HEPARIN [Suspect]
     Active Substance: HEPARIN SODIUM
     Indication: ANGIOCARDIOGRAM
     Route: 042
     Dates: start: 20190311, end: 20190311
  17. ISOPTINE [Suspect]
     Active Substance: VERAPAMIL HYDROCHLORIDE
     Indication: ANGIOCARDIOGRAM
     Route: 042
     Dates: start: 20190311, end: 20190311
  18. BRILIQUE [Suspect]
     Active Substance: TICAGRELOR
     Indication: ACUTE CORONARY SYNDROME
     Dosage: STRENGTH: 90 MG
     Dates: start: 20190311
  19. LIDOCAINE. [Suspect]
     Active Substance: LIDOCAINE
     Indication: ANGIOPLASTY
     Route: 058
     Dates: start: 20190325, end: 20190325
  20. IOMEPROL [Suspect]
     Active Substance: IOMEPROL
     Indication: ANGIOPLASTY
     Dosage: STRENGTH:350 (350 MG IODE/ML),SOLUTION INJECTABLE
     Route: 013
     Dates: start: 20190325, end: 20190325
  21. VISIPAQUE [Suspect]
     Active Substance: IODIXANOL
     Indication: ANGIOCARDIOGRAM
     Route: 013
     Dates: start: 20190311, end: 20190311

REACTIONS (2)
  - Pruritus [Recovered/Resolved]
  - Erythema [Recovered/Resolved]

NARRATIVE: CASE EVENT DATE: 20190326
